FAERS Safety Report 15386710 (Version 1)
Quarter: 2018Q3

REPORT INFORMATION
  Report Type: Spontaneous
  Country: US (occurrence: US)
  Receive Date: 20180914
  Receipt Date: 20180914
  Transmission Date: 20181010
  Serious: Yes (Other)
  Sender: FDA-Public Use
  Company Number: US-ASTRAZENECA-2018SF15466

PATIENT
  Age: 772 Month
  Sex: Female
  Weight: 63.5 kg

DRUGS (37)
  1. NEXIUM [Suspect]
     Active Substance: ESOMEPRAZOLE MAGNESIUM
     Indication: GASTROOESOPHAGEAL REFLUX DISEASE
     Dosage: GENERIC
     Route: 048
     Dates: start: 2015, end: 2016
  2. PRILOSEC [Suspect]
     Active Substance: OMEPRAZOLE MAGNESIUM
     Indication: GASTROOESOPHAGEAL REFLUX DISEASE
     Dosage: GENERIC
     Route: 048
     Dates: start: 2001
  3. PREVACID [Suspect]
     Active Substance: LANSOPRAZOLE
     Indication: GASTROOESOPHAGEAL REFLUX DISEASE
     Route: 065
     Dates: start: 2006, end: 2007
  4. IBUPROFEN. [Concomitant]
     Active Substance: IBUPROFEN
     Route: 065
     Dates: start: 2003, end: 2015
  5. PEPCID AC (OTC) [Concomitant]
     Route: 065
     Dates: start: 2000
  6. AMLODIPINE BESYLATE. [Concomitant]
     Active Substance: AMLODIPINE BESYLATE
     Route: 048
     Dates: start: 20160308
  7. PRILOSEC OTC [Suspect]
     Active Substance: OMEPRAZOLE MAGNESIUM
     Indication: GASTROOESOPHAGEAL REFLUX DISEASE
     Route: 048
     Dates: start: 2006, end: 2015
  8. TUMS [Concomitant]
     Active Substance: CALCIUM CARBONATE
     Route: 065
     Dates: start: 2003
  9. RENA?VITE [Concomitant]
     Active Substance: ASCORBIC ACID\BIOTIN\CALCIUM PANTOTHENATE\CYANOCOBALAMIN\FOLIC ACID\NIACINAMIDE\PYRIDOXINE HYDROCHLORIDE\RIBOFLAVIN\THIAMINE MONONITRATE
     Route: 065
     Dates: start: 20150201
  10. ENALAPRIL [Concomitant]
     Active Substance: ENALAPRIL
     Route: 065
     Dates: start: 20141203
  11. NEXIUM [Suspect]
     Active Substance: ESOMEPRAZOLE MAGNESIUM
     Indication: GASTROOESOPHAGEAL REFLUX DISEASE
     Route: 048
     Dates: start: 2015
  12. NEXIUM [Suspect]
     Active Substance: ESOMEPRAZOLE MAGNESIUM
     Indication: GASTROOESOPHAGEAL REFLUX DISEASE
     Route: 048
     Dates: start: 20150223
  13. NEXIUM [Suspect]
     Active Substance: ESOMEPRAZOLE MAGNESIUM
     Indication: GASTROOESOPHAGEAL REFLUX DISEASE
     Dosage: GENERIC
     Route: 048
     Dates: start: 20150922
  14. TYLENOL [Concomitant]
     Active Substance: ACETAMINOPHEN
     Route: 065
     Dates: start: 2015
  15. POTASSIUM CITRATE. [Concomitant]
     Active Substance: POTASSIUM CITRATE
     Route: 048
     Dates: start: 20160614
  16. RENVELA [Concomitant]
     Active Substance: SEVELAMER CARBONATE
     Route: 065
     Dates: start: 20150406
  17. PLAVIX [Concomitant]
     Active Substance: CLOPIDOGREL BISULFATE
     Route: 065
     Dates: start: 20060628
  18. FUROSEMIDE. [Concomitant]
     Active Substance: FUROSEMIDE
     Route: 065
     Dates: start: 20150123
  19. DURICEF [Concomitant]
     Active Substance: CEFADROXIL
     Route: 065
     Dates: start: 19960130
  20. NEXIUM [Suspect]
     Active Substance: ESOMEPRAZOLE MAGNESIUM
     Indication: GASTROOESOPHAGEAL REFLUX DISEASE
     Route: 048
     Dates: start: 20150303
  21. OXYCODONE?ACETAMINOPHEN [Concomitant]
     Active Substance: ACETAMINOPHEN\OXYCODONE HYDROCHLORIDE
     Dosage: 5?325 MG
     Route: 048
     Dates: start: 20160402
  22. SODIUM BICARBONATE. [Concomitant]
     Active Substance: SODIUM BICARBONATE
     Route: 048
     Dates: start: 20160413
  23. HYDROCHLOROTHIAZIDE. [Concomitant]
     Active Substance: HYDROCHLOROTHIAZIDE
     Route: 065
     Dates: start: 20150126
  24. PRILOSEC [Suspect]
     Active Substance: OMEPRAZOLE MAGNESIUM
     Indication: GASTROOESOPHAGEAL REFLUX DISEASE
     Route: 048
     Dates: start: 2005, end: 2006
  25. ZANTAC (OTC) [Concomitant]
     Dosage: 75
     Route: 065
     Dates: start: 2000
  26. ONDANSETRON [Concomitant]
     Active Substance: ONDANSETRON
     Route: 065
     Dates: start: 20150427
  27. ASPIRIN. [Concomitant]
     Active Substance: ASPIRIN
     Route: 048
  28. VITAMIN B12 [Concomitant]
     Active Substance: CYANOCOBALAMIN
     Route: 065
     Dates: start: 201501
  29. VITAMIN B NOS [Concomitant]
     Active Substance: VITAMIN B
     Dosage: 3000
     Route: 065
     Dates: start: 201501
  30. LISINOPRIL. [Concomitant]
     Active Substance: LISINOPRIL
     Route: 048
     Dates: start: 20160427
  31. NEXIUM 24HR [Suspect]
     Active Substance: ESOMEPRAZOLE MAGNESIUM
     Route: 048
  32. PRILOSEC [Suspect]
     Active Substance: OMEPRAZOLE MAGNESIUM
     Indication: GASTROOESOPHAGEAL REFLUX DISEASE
     Dosage: GENERIC
     Route: 048
     Dates: start: 20110329
  33. METOPROLOL SUCCINATE. [Concomitant]
     Active Substance: METOPROLOL SUCCINATE
     Route: 048
     Dates: start: 20160315
  34. CEPHALEXIN. [Concomitant]
     Active Substance: CEPHALEXIN
     Route: 048
     Dates: start: 20160402
  35. PREDNISONE. [Concomitant]
     Active Substance: PREDNISONE
     Route: 048
     Dates: start: 20161228
  36. NITROFURANTOIN. [Concomitant]
     Active Substance: NITROFURANTOIN
     Route: 065
     Dates: start: 20141231
  37. TETRACYCLINE [Concomitant]
     Active Substance: TETRACYCLINE
     Route: 065
     Dates: start: 20061120

REACTIONS (12)
  - Dyspnoea [Not Recovered/Not Resolved]
  - Renal failure [Unknown]
  - Renal tubular necrosis [Unknown]
  - Renal tubular acidosis [Unknown]
  - Nephrogenic anaemia [Not Recovered/Not Resolved]
  - Gait disturbance [Not Recovered/Not Resolved]
  - Acute kidney injury [Unknown]
  - End stage renal disease [Unknown]
  - Renal injury [Not Recovered/Not Resolved]
  - Cervix carcinoma [Not Recovered/Not Resolved]
  - Dizziness [Not Recovered/Not Resolved]
  - Chronic kidney disease [Unknown]

NARRATIVE: CASE EVENT DATE: 201412
